FAERS Safety Report 9330257 (Version 1)
Quarter: 2013Q2

REPORT INFORMATION
  Report Type: Spontaneous
  Country: JP (occurrence: JP)
  Receive Date: 20130605
  Receipt Date: 20130605
  Transmission Date: 20140414
  Serious: Yes (Other)
  Sender: FDA-Public Use
  Company Number: JP-009507513-1305JPN017600

PATIENT
  Sex: 0

DRUGS (2)
  1. PEGINTRON [Suspect]
     Route: 058
  2. REBETOL [Suspect]
     Route: 048

REACTIONS (1)
  - Deafness [Unknown]
